FAERS Safety Report 9202827 (Version 3)
Quarter: 2013Q2

REPORT INFORMATION
  Report Type: Spontaneous
  Country: US (occurrence: US)
  Receive Date: 20130401
  Receipt Date: 20130524
  Transmission Date: 20140414
  Serious: No
  Sender: FDA-Public Use
  Company Number: US-009507513-1303USA012356

PATIENT
  Age: 56 Year
  Sex: Female

DRUGS (12)
  1. VICTRELIS [Suspect]
     Indication: HEPATITIS C
     Dosage: 600 MG,EVERY 8 HOURS
     Route: 048
     Dates: start: 20130306
  2. VICTRELIS [Suspect]
     Dosage: 800 MG, TID
     Route: 048
     Dates: start: 201302
  3. PEGASYS [Suspect]
     Dosage: UNK
     Dates: start: 20130211
  4. RIBASPHERE [Suspect]
     Dosage: UNK
     Dates: start: 20130211
  5. RECLAST [Concomitant]
     Dosage: 5MG PER 100 ML SOLUTION
     Route: 042
  6. TYLENOL [Concomitant]
     Dosage: 325 MG, PRN
  7. MECLIZINE [Concomitant]
     Dosage: 12.5 MG, PRN
     Route: 048
  8. MIRALAX [Concomitant]
     Dosage: ONE DOSE DAILY
  9. CALCIUM (UNSPECIFIED) (+) VITAMIN D (UNSPECIFIED) [Concomitant]
     Dosage: UNK, QD
     Route: 048
  10. MILK THISTLE [Concomitant]
     Dosage: UNK, QD
     Route: 048
  11. VITAMIN B COMPLEX [Concomitant]
     Route: 048
  12. ADDERALL TABLETS [Concomitant]

REACTIONS (10)
  - Saliva altered [Not Recovered/Not Resolved]
  - Nasal ulcer [Not Recovered/Not Resolved]
  - Haemoglobin abnormal [Unknown]
  - Oropharyngeal pain [Not Recovered/Not Resolved]
  - Cough [Not Recovered/Not Resolved]
  - Nausea [Not Recovered/Not Resolved]
  - Decreased appetite [Not Recovered/Not Resolved]
  - Vomiting [Not Recovered/Not Resolved]
  - Fatigue [Not Recovered/Not Resolved]
  - Dysgeusia [Not Recovered/Not Resolved]
